FAERS Safety Report 16570399 (Version 1)
Quarter: 2019Q3

REPORT INFORMATION
  Report Type: Spontaneous
  Country: US (occurrence: US)
  Receive Date: 20190715
  Receipt Date: 20190715
  Transmission Date: 20191004
  Serious: No
  Sender: FDA-Public Use
  Company Number: US-BAYER-2019-131709

PATIENT
  Age: 67 Year
  Sex: Female

DRUGS (2)
  1. CLIMARA PRO [Suspect]
     Active Substance: ESTRADIOL\LEVONORGESTREL
     Indication: HOT FLUSH
     Dosage: UNK UNK, OW
     Route: 062
     Dates: start: 2014, end: 201904
  2. CLIMARA PRO [Suspect]
     Active Substance: ESTRADIOL\LEVONORGESTREL
     Indication: HOT FLUSH
     Dosage: UNK, OW
     Route: 062
     Dates: start: 2019

REACTIONS (3)
  - Application site rash [None]
  - Application site erythema [None]
  - Application site rash [None]

NARRATIVE: CASE EVENT DATE: 201904
